FAERS Safety Report 7098786-3 (Version None)
Quarter: 2010Q4

REPORT INFORMATION
  Report Type: 
  Country: None (occurrence: None)
  Receive Date: 20101112
  Receipt Date: 20101101
  Transmission Date: 20110411
  Serious: Yes (Other)
  Sender: FDA-Public Use
  Company Number: US-ROCHE-718964

PATIENT
  Sex: Male
  Weight: 83.9 kg

DRUGS (2)
  1. ACCUTANE [Suspect]
     Indication: ACNE
     Route: 048
     Dates: start: 19920221, end: 19920801
  2. TETRACYCLINE [Concomitant]
     Indication: ACNE

REACTIONS (8)
  - BLOOD TRIGLYCERIDES INCREASED [None]
  - CHAPPED LIPS [None]
  - CONJUNCTIVAL IRRITATION [None]
  - CROHN'S DISEASE [None]
  - GASTROINTESTINAL INJURY [None]
  - INFLAMMATORY BOWEL DISEASE [None]
  - ORAL DISORDER [None]
  - SKIN FISSURES [None]
